FAERS Safety Report 15945255 (Version 2)
Quarter: 2019Q4

REPORT INFORMATION
  Report Type: Spontaneous
  Country: US (occurrence: US)
  Receive Date: 20190211
  Receipt Date: 20191028
  Transmission Date: 20200122
  Serious: No
  Sender: FDA-Public Use
  Company Number: US-SA-2019SA033504

PATIENT
  Age: 48 Year
  Sex: Female

DRUGS (2)
  1. DUPIXENT [Suspect]
     Active Substance: DUPILUMAB
     Dosage: UNK UNK, OTHER
     Route: 058
     Dates: start: 20181205
  2. DUPIXENT [Suspect]
     Active Substance: DUPILUMAB
     Dosage: 300 MG, OTHER
     Route: 058
     Dates: start: 201909

REACTIONS (5)
  - Malaise [Unknown]
  - Eye irritation [Unknown]
  - Product dose omission [Unknown]
  - Dry eye [Unknown]
  - Pruritus [Unknown]

NARRATIVE: CASE EVENT DATE: 20190926
